FAERS Safety Report 4555801-6 (Version None)
Quarter: 2005Q1

REPORT INFORMATION
  Report Type: 
  Country: None (occurrence: None)
  Receive Date: 20050118
  Receipt Date: 20041022
  Transmission Date: 20050727
  Serious: No
  Sender: FDA-Public Use
  Company Number: A03200403565

PATIENT
  Age: 57 Year
  Sex: Male

DRUGS (3)
  1. UROXATRAL [Suspect]
     Indication: URINARY TRACT DISORDER
     Dosage: 10 MG OD ORAL
     Route: 048
     Dates: start: 20041020
  2. PAROXETINE HYDROCHLORIDE [Concomitant]
  3. FINASTERIDE [Concomitant]

REACTIONS (1)
  - DYSGEUSIA [None]
